FAERS Safety Report 4627454-X (Version None)
Quarter: 2005Q1

REPORT INFORMATION
  Report Type: 
  Country: None (occurrence: None)
  Receive Date: 20050331
  Receipt Date: 20050321
  Transmission Date: 20050727
  Serious: Yes (Hospitalization)
  Sender: FDA-Public Use
  Company Number: 2005047943

PATIENT
  Sex: Female

DRUGS (2)
  1. LYRICA [Suspect]
     Indication: NEUROPATHY PERIPHERAL
     Dosage: 300 MG (1 IN 1 D), ORAL
     Route: 048
     Dates: start: 20050101
  2. MORPHINE SULFATE [Concomitant]

REACTIONS (4)
  - CLONUS [None]
  - COMA [None]
  - OVERDOSE [None]
  - RENAL FAILURE [None]
